FAERS Safety Report 25876094 (Version 1)
Quarter: 2025Q4

REPORT INFORMATION
  Report Type: Spontaneous
  Country: GB (occurrence: GB)
  Receive Date: 20251003
  Receipt Date: 20251003
  Transmission Date: 20260118
  Serious: Yes (Other)
  Sender: AUROBINDO
  Company Number: GB-MHRA-MED-202509181007134570-LSWJV

PATIENT
  Age: 67 Year
  Sex: Male
  Weight: 99 kg

DRUGS (3)
  1. DUTASTERIDE [Suspect]
     Active Substance: DUTASTERIDE
     Indication: Prostatomegaly
     Dosage: 400 MICROGRAM, ONCE A DAY
     Route: 065
     Dates: start: 2022, end: 20250916
  2. TAMSULOSIN [Suspect]
     Active Substance: TAMSULOSIN
     Indication: Prostatomegaly
     Dosage: 400 MICROGRAM, ONCE A DAY
     Route: 065
     Dates: start: 2022, end: 20250916
  3. GAVISCON [Concomitant]
     Active Substance: ALUMINUM HYDROXIDE\MAGNESIUM CARBONATE
     Indication: Gastrooesophageal reflux disease
     Dosage: UNK
     Route: 065
     Dates: start: 2023

REACTIONS (6)
  - Syncope [Recovering/Resolving]
  - Back pain [Unknown]
  - Pain in extremity [Unknown]
  - Malaise [Unknown]
  - Asthenia [Unknown]
  - Fatigue [Unknown]
